FAERS Safety Report 10901410 (Version 1)
Quarter: 2015Q1

REPORT INFORMATION
  Report Type: Spontaneous
  Country: DK (occurrence: NL)
  Receive Date: 20150310
  Receipt Date: 20150310
  Transmission Date: 20150721
  Serious: Yes (Life-Threatening, Hospitalization)
  Sender: FDA-Public Use
  Company Number: NL-FRI-1000075069

PATIENT
  Age: 38 Year
  Sex: Female
  Weight: 50 kg

DRUGS (2)
  1. CITALOPRAM [Suspect]
     Active Substance: CITALOPRAM HYDROBROMIDE
     Indication: POST-TRAUMATIC STRESS DISORDER
     Dosage: 40 MG DAILY
     Route: 048
     Dates: start: 2005
  2. STRUMAZOL (THIAMAZOLE) (TABLET) (THIAMAZOLE) [Suspect]
     Active Substance: METHIMAZOLE
     Indication: BASEDOW^S DISEASE
     Dosage: 30 MG DAILY
     Route: 065
     Dates: start: 20140123

REACTIONS (9)
  - Muscle disorder [Recovering/Resolving]
  - Fatigue [Recovering/Resolving]
  - Hypoacusis [Unknown]
  - Vital functions abnormal [Unknown]
  - Amnesia [Recovering/Resolving]
  - Feeling abnormal [Unknown]
  - Impaired driving ability [Unknown]
  - Drug interaction [Recovering/Resolving]
  - Dizziness [Recovering/Resolving]

NARRATIVE: CASE EVENT DATE: 20141224
